FAERS Safety Report 7973791-0 (Version None)
Quarter: 2011Q4

REPORT INFORMATION
  Report Type: 
  Country: None (occurrence: None)
  Receive Date: 20111213
  Receipt Date: 20111205
  Transmission Date: 20120403
  Serious: Yes (Other)
  Sender: FDA-Public Use
  Company Number: PHEH2011US010845

PATIENT
  Sex: Female

DRUGS (15)
  1. CELEXA [Concomitant]
  2. ASPIRIN [Concomitant]
  3. VICODIN [Concomitant]
  4. ADVAIR DISKUS 100/50 [Concomitant]
  5. ZOMETA [Suspect]
     Dosage: 4 MG, EVERY 12 WEEKS
  6. PRILOSEC [Concomitant]
  7. SYMBICORT [Concomitant]
  8. XANAX [Concomitant]
  9. VITAMIN B-12 [Concomitant]
  10. REVLIMID [Concomitant]
  11. MULTI-VITAMIN [Concomitant]
  12. DILAUDID [Concomitant]
  13. ZOMETA [Suspect]
     Dosage: 4 MG, QMO
  14. ZOCOR [Concomitant]
  15. PROAIR (FLUTICASONE PROPIONATE) [Concomitant]

REACTIONS (1)
  - RECURRENT CANCER [None]
